FAERS Safety Report 6565614-1 (Version None)
Quarter: 2010Q1

REPORT INFORMATION
  Report Type: 
  Country: None (occurrence: None)
  Receive Date: 20100201
  Receipt Date: 20091218
  Transmission Date: 20100710
  Serious: Yes (Other)
  Sender: FDA-Public Use
  Company Number: US-BAXTER-2009BH013288

PATIENT
  Age: 51 Year
  Sex: Male
  Weight: 102 kg

DRUGS (24)
  1. HEPARIN SODIUM INJECTION [Suspect]
     Indication: CARDIAC VENTRICULOGRAM LEFT
     Route: 014
     Dates: start: 20071124, end: 20071124
  2. HEPARIN SODIUM INJECTION [Suspect]
     Indication: CATHETERISATION CARDIAC
     Route: 014
     Dates: start: 20071124, end: 20071124
  3. HEPARIN SODIUM INJECTION [Suspect]
     Indication: ARTERIOGRAM CORONARY
     Route: 014
     Dates: start: 20071124, end: 20071124
  4. HEPARIN SODIUM INJECTION [Suspect]
     Route: 042
     Dates: start: 20071124, end: 20071124
  5. HEPARIN SODIUM INJECTION [Suspect]
     Route: 042
     Dates: start: 20071124, end: 20071124
  6. HEPARIN SODIUM INJECTION [Suspect]
     Route: 042
     Dates: start: 20071124, end: 20071124
  7. HEPARIN SODIUM INJECTION [Suspect]
     Route: 014
     Dates: start: 20071128, end: 20071128
  8. HEPARIN SODIUM INJECTION [Suspect]
     Route: 014
     Dates: start: 20071128, end: 20071128
  9. HEPARIN SODIUM INJECTION [Suspect]
     Route: 014
     Dates: start: 20071128, end: 20071128
  10. HEPARIN SODIUM 5,000 UNITS IN DEXTROSE 5% [Suspect]
     Indication: CARDIAC VENTRICULOGRAM LEFT
     Route: 041
     Dates: start: 20071124, end: 20071125
  11. HEPARIN SODIUM 5,000 UNITS IN DEXTROSE 5% [Suspect]
     Indication: CATHETERISATION CARDIAC
     Route: 041
     Dates: start: 20071124, end: 20071125
  12. HEPARIN SODIUM 5,000 UNITS IN DEXTROSE 5% [Suspect]
     Indication: ARTERIOGRAM CORONARY
     Route: 041
     Dates: start: 20071124, end: 20071125
  13. HEPARIN SODIUM 5,000 UNITS IN DEXTROSE 5% [Suspect]
     Indication: INTRACARDIAC THROMBUS
     Route: 041
     Dates: start: 20071124, end: 20071125
  14. HEPARIN SODIUM 5,000 UNITS IN DEXTROSE 5% [Suspect]
     Route: 041
     Dates: start: 20071128, end: 20071128
  15. HEPARIN SODIUM 5,000 UNITS IN DEXTROSE 5% [Suspect]
     Route: 041
     Dates: start: 20071128, end: 20071128
  16. HEPARIN SODIUM 5,000 UNITS IN DEXTROSE 5% [Suspect]
     Route: 041
     Dates: start: 20071128, end: 20071128
  17. HEPARIN SODIUM 5,000 UNITS IN DEXTROSE 5% [Suspect]
     Route: 041
     Dates: start: 20071128, end: 20071128
  18. HEPARIN SODIUM 5,000 UNITS IN DEXTROSE 5% [Suspect]
     Route: 041
     Dates: start: 20071128, end: 20071129
  19. HEPARIN SODIUM 5,000 UNITS IN DEXTROSE 5% [Suspect]
     Route: 041
     Dates: start: 20071128, end: 20071129
  20. HEPARIN SODIUM 5,000 UNITS IN DEXTROSE 5% [Suspect]
     Route: 041
     Dates: start: 20071128, end: 20071129
  21. HEPARIN SODIUM 5,000 UNITS IN DEXTROSE 5% [Suspect]
     Route: 041
     Dates: start: 20071128, end: 20071129
  22. INTEGRILIN [Suspect]
     Indication: CARDIAC VENTRICULOGRAM LEFT
     Route: 040
     Dates: start: 20071124
  23. INTEGRILIN [Suspect]
     Indication: CATHETERISATION CARDIAC
     Route: 040
     Dates: start: 20071124
  24. INTEGRILIN [Suspect]
     Indication: ARTERIOGRAM CORONARY
     Route: 040
     Dates: start: 20071124

REACTIONS (8)
  - ANAPHYLACTIC REACTION [None]
  - BLOOD PRESSURE SYSTOLIC DECREASED [None]
  - CARDIOMEGALY [None]
  - FEELING ABNORMAL [None]
  - HAEMODYNAMIC INSTABILITY [None]
  - HOT FLUSH [None]
  - IMMOBILE [None]
  - TACHYCARDIA [None]
